FAERS Safety Report 23980300 (Version 1)
Quarter: 2024Q2

REPORT INFORMATION
  Report Type: Spontaneous
  Country: DE (occurrence: DE)
  Receive Date: 20240617
  Receipt Date: 20240617
  Transmission Date: 20240716
  Serious: Yes (Other)
  Sender: FDA-Public Use
  Company Number: DE-DCGMA-24203347

PATIENT
  Age: 83 Year
  Sex: Female
  Weight: 61.0 kg

DRUGS (10)
  1. TOCILIZUMAB [Suspect]
     Active Substance: TOCILIZUMAB
     Indication: Rheumatoid arthritis
     Route: 058
     Dates: start: 20230911, end: 20231211
  2. FOLIC ACID [Concomitant]
     Active Substance: FOLIC ACID
  3. ELIQUIS [Concomitant]
     Active Substance: APIXABAN
     Dosage: 5 MG 1-0-1-0
  4. PREDNISOLONE [Concomitant]
     Active Substance: PREDNISOLONE
     Indication: Giant cell arteritis
     Dosage: JEDEN 2. TAG
  5. AMLODIPINE BESYLATE [Concomitant]
     Active Substance: AMLODIPINE BESYLATE
  6. RAMIPRIL [Concomitant]
     Active Substance: RAMIPRIL
     Dosage: 0.5-0-0.5
  7. METOPROLOL SUCCINATE [Concomitant]
     Active Substance: METOPROLOL SUCCINATE
     Dosage: 47.5 MG 1-0-1
  8. PROLIA [Concomitant]
     Active Substance: DENOSUMAB
     Dosage: 60 MG/ML ALLE 6 MONATE
  9. PANTOPRAZOLE SODIUM [Concomitant]
     Active Substance: PANTOPRAZOLE SODIUM
  10. LEQVIO [Concomitant]
     Active Substance: INCLISIRAN SODIUM

REACTIONS (4)
  - Dermatitis [Unknown]
  - Dermatitis bullous [Unknown]
  - Hypersensitivity [Unknown]
  - Pruritus [Unknown]
